FAERS Safety Report 8602501 (Version 2)
Quarter: 2012Q4

REPORT INFORMATION
  Report Type: 
  Country: US (occurrence: US)
  Receive Date: 20120607
  Receipt Date: 20121226
  Transmission Date: 20130627
  Serious: Yes (Congenital Anomaly, Other)
  Sender: FDA-Public Use
  Company Number: US-PFIZER INC-2012133932

PATIENT
  Sex: Male
  Weight: 3.42 kg

DRUGS (8)
  1. ZOLOFT [Suspect]
     Indication: ANXIETY
     Dosage: UNK
     Route: 064
     Dates: start: 2004, end: 2005
  2. ZOLOFT [Suspect]
     Indication: DEPRESSION
  3. ZOLOFT [Suspect]
     Indication: MOOD DISORDER NOS
  4. WELLBUTRIN [Concomitant]
     Dosage: UNK
     Route: 064
  5. PAXIL [Concomitant]
     Dosage: UNK
     Route: 064
  6. ADDERALL [Concomitant]
     Dosage: UNK
     Route: 064
  7. TYLENOL [Concomitant]
     Dosage: UNK
     Route: 064
  8. ADVIL [Concomitant]
     Dosage: UNK
     Route: 064

REACTIONS (6)
  - Maternal exposure during pregnancy [Unknown]
  - Heart disease congenital [Unknown]
  - Ventricular septal defect [Unknown]
  - Multiple cardiac defects [Unknown]
  - Hypoplastic right heart syndrome [Unknown]
  - Patent ductus arteriosus [Unknown]
